FAERS Safety Report 7457585-0 (Version None)
Quarter: 2011Q2

REPORT INFORMATION
  Report Type: 
  Country: None (occurrence: None)
  Receive Date: 20110504
  Receipt Date: 20110428
  Transmission Date: 20111010
  Serious: Yes (Other)
  Sender: FDA-Public Use
  Company Number: US-RB-024737-11

PATIENT
  Age: 32 Year
  Sex: Female

DRUGS (1)
  1. MUCINEX DM [Suspect]
     Dosage: PATIENT TOOK THE PRODUCT FROM 8PM ON 27-APR-2011 TO 8AM ON 28-APR-2011.
     Route: 048

REACTIONS (4)
  - SOMNOLENCE [None]
  - HYPOAESTHESIA [None]
  - FEELING ABNORMAL [None]
  - HALLUCINATION [None]
